FAERS Safety Report 11756100 (Version 1)
Quarter: 2015Q4

REPORT INFORMATION
  Report Type: Spontaneous
  Country: IL (occurrence: IL)
  Receive Date: 20151119
  Receipt Date: 20151119
  Transmission Date: 20160304
  Serious: Yes (Other)
  Sender: FDA-Public Use
  Company Number: IL-TAKEDA-2015TUS014842

PATIENT
  Age: 31 Year
  Sex: Female

DRUGS (2)
  1. 5-ASA [Concomitant]
     Active Substance: MESALAMINE
     Dosage: UNK
  2. ENTYVIO [Suspect]
     Active Substance: VEDOLIZUMAB
     Indication: COLITIS ULCERATIVE
     Dosage: 300 MG, UNK
     Route: 042

REACTIONS (3)
  - Pregnancy [Unknown]
  - Drug ineffective [Unknown]
  - Abortion spontaneous [Unknown]
